FAERS Safety Report 6712039-1 (Version None)
Quarter: 2010Q2

REPORT INFORMATION
  Report Type: 
  Country: None (occurrence: None)
  Receive Date: 20100505
  Receipt Date: 20100427
  Transmission Date: 20101027
  Serious: Yes (Other)
  Sender: FDA-Public Use
  Company Number: US-PFIZER INC-2010033617

PATIENT
  Sex: Male

DRUGS (1)
  1. SUTENT [Suspect]
     Indication: RENAL CELL CARCINOMA
     Dosage: 50 MG, 1X/DAY, 4-2 CYCLE
     Route: 048
     Dates: start: 20100222, end: 20100315

REACTIONS (14)
  - CONFUSIONAL STATE [None]
  - CONSTIPATION [None]
  - DECREASED APPETITE [None]
  - DIZZINESS [None]
  - DYSPNOEA [None]
  - EYE SWELLING [None]
  - FALL [None]
  - FEELING COLD [None]
  - HAEMORRHOIDAL HAEMORRHAGE [None]
  - MALIGNANT NEOPLASM PROGRESSION [None]
  - ORAL PAIN [None]
  - REFUSAL OF TREATMENT BY PATIENT [None]
  - SWOLLEN TONGUE [None]
  - WHITE BLOOD CELL COUNT DECREASED [None]
